FAERS Safety Report 25234809 (Version 1)
Quarter: 2025Q2

REPORT INFORMATION
  Report Type: Spontaneous
  Country: US (occurrence: US)
  Receive Date: 20250424
  Receipt Date: 20250424
  Transmission Date: 20250717
  Serious: Yes (Hospitalization)
  Sender: MYLAN
  Company Number: US-MYLANLABS-2025M1034938

PATIENT
  Age: 59 Year
  Sex: Female

DRUGS (2)
  1. TACROLIMUS [Suspect]
     Active Substance: TACROLIMUS
     Indication: Immunosuppressant drug therapy
  2. MYCOPHENOLIC ACID [Suspect]
     Active Substance: MYCOPHENOLIC ACID
     Indication: Immunosuppressant drug therapy
     Dosage: 180 MILLIGRAM, BID

REACTIONS (4)
  - Enteritis infectious [Recovering/Resolving]
  - Norovirus infection [Recovering/Resolving]
  - Acute kidney injury [Recovering/Resolving]
  - Hypogammaglobulinaemia [Unknown]
